FAERS Safety Report 17686085 (Version 1)
Quarter: 2020Q2

REPORT INFORMATION
  Report Type: Spontaneous
  Country: DE (occurrence: DE)
  Receive Date: 20200420
  Receipt Date: 20200420
  Transmission Date: 20200714
  Serious: Yes (Other)
  Sender: FDA-Public Use
  Company Number: DE-INCYTE CORPORATION-2020IN003635

PATIENT

DRUGS (1)
  1. JAKAVI [Suspect]
     Active Substance: RUXOLITINIB
     Indication: MYELOID LEUKAEMIA
     Dosage: 5 MG, BID
     Route: 065

REACTIONS (2)
  - Chronic myeloid leukaemia recurrent [Unknown]
  - Product use in unapproved indication [Unknown]
